FAERS Safety Report 21044953 (Version 3)
Quarter: 2022Q3

REPORT INFORMATION
  Report Type: Spontaneous
  Country: GB (occurrence: GB)
  Receive Date: 20220705
  Receipt Date: 20220727
  Transmission Date: 20221027
  Serious: Yes (Other)
  Sender: FDA-Public Use
  Company Number: GB-MYLANLABS-2022M1047327

PATIENT
  Age: 28 Year
  Sex: Female

DRUGS (1)
  1. CLOZARIL [Suspect]
     Active Substance: CLOZAPINE
     Indication: Schizophrenia
     Dosage: UNK
     Route: 048
     Dates: start: 20220503, end: 2022

REACTIONS (6)
  - Neutrophil count increased [Unknown]
  - White blood cell count increased [Unknown]
  - Neutrophil count decreased [Recovered/Resolved]
  - Malaise [Unknown]
  - Suspiciousness [Unknown]
  - White blood cell count decreased [Recovered/Resolved]

NARRATIVE: CASE EVENT DATE: 20220516
